FAERS Safety Report 14433916 (Version 7)
Quarter: 2018Q2

REPORT INFORMATION
  Report Type: Report from Study
  Country: US (occurrence: US)
  Receive Date: 20180124
  Receipt Date: 20180530
  Transmission Date: 20180711
  Serious: Yes (Hospitalization, Other)
  Sender: FDA-Public Use
  Company Number: PHEH2018US003095

PATIENT
  Age: 18 Year
  Sex: Female

DRUGS (1)
  1. GILENYA [Suspect]
     Active Substance: FINGOLIMOD HYDROCHLORIDE
     Indication: MULTIPLE SCLEROSIS
     Dosage: 0.5 MG, QD
     Route: 048
     Dates: start: 20171207

REACTIONS (10)
  - Rhinorrhoea [Unknown]
  - Vomiting [Unknown]
  - Nausea [Recovered/Resolved]
  - Jaundice [Recovered/Resolved]
  - Asthenia [Unknown]
  - Nasopharyngitis [Unknown]
  - Fatigue [Unknown]
  - Cholelithiasis [Recovering/Resolving]
  - Nausea [Unknown]
  - Abdominal pain [Recovering/Resolving]

NARRATIVE: CASE EVENT DATE: 20180106
